FAERS Safety Report 8105747-1 (Version None)
Quarter: 2012Q1

REPORT INFORMATION
  Report Type: 
  Country: None (occurrence: None)
  Receive Date: 20120201
  Receipt Date: 20120125
  Transmission Date: 20120608
  Serious: Yes (Other)
  Sender: FDA-Public Use
  Company Number: US-AMGEN-USASP2011036814

PATIENT
  Age: 58 Year
  Sex: Female

DRUGS (1)
  1. ENBREL [Suspect]
     Indication: RHEUMATOID ARTHRITIS
     Dosage: 50 MG, QWK
     Route: 058
     Dates: start: 20061109

REACTIONS (12)
  - CATARACT [None]
  - AMNESIA [None]
  - SHOULDER OPERATION [None]
  - CONTUSION [None]
  - NODULE [None]
  - IMPAIRED HEALING [None]
  - MUSCULOSKELETAL STIFFNESS [None]
  - UPPER LIMB FRACTURE [None]
  - JOINT SWELLING [None]
  - MUSCLE SPASMS [None]
  - SINUSITIS [None]
  - JOINT STIFFNESS [None]
